FAERS Safety Report 21410378 (Version 1)
Quarter: 2022Q4

REPORT INFORMATION
  Report Type: Spontaneous
  Country: US (occurrence: US)
  Receive Date: 20221005
  Receipt Date: 20221005
  Transmission Date: 20230113
  Serious: No
  Sender: FDA-Public Use
  Company Number: US-ALLERGAN-2231782US

PATIENT
  Sex: Female

DRUGS (29)
  1. UBRELVY [Suspect]
     Active Substance: UBROGEPANT
     Indication: Migraine
     Dosage: 100 MG, PRN
  2. NURTEC ODT [Suspect]
     Active Substance: RIMEGEPANT SULFATE
     Indication: Migraine
     Dosage: 75 MG, PRN
  3. BOTOX [Concomitant]
     Active Substance: ONABOTULINUMTOXINA
     Indication: Migraine
     Dosage: UNK, SINGLE
     Dates: start: 20220414, end: 20220414
  4. BOTOX [Concomitant]
     Active Substance: ONABOTULINUMTOXINA
     Dosage: UNK, SINGLE
     Dates: start: 20220113, end: 20220113
  5. BOTOX [Concomitant]
     Active Substance: ONABOTULINUMTOXINA
     Dosage: UNK, SINGLE
     Dates: start: 20211006, end: 20211006
  6. BOTOX [Concomitant]
     Active Substance: ONABOTULINUMTOXINA
     Dosage: UNK, SINGLE
     Dates: start: 20210701, end: 20210701
  7. BOTOX [Concomitant]
     Active Substance: ONABOTULINUMTOXINA
     Dosage: UNK, SINGLE
     Dates: start: 20210304, end: 20210304
  8. BOTOX [Concomitant]
     Active Substance: ONABOTULINUMTOXINA
     Dosage: 25 UNITS, SINGLE
     Dates: start: 20201208, end: 20201208
  9. BOTOX [Concomitant]
     Active Substance: ONABOTULINUMTOXINA
     Dosage: UNK, SINGLE
     Dates: start: 20201124, end: 20201124
  10. BACLOFEN [Concomitant]
     Active Substance: BACLOFEN
     Indication: Neck pain
     Dosage: 20 MG QHS AS NEEDED
  11. TRAMADOL [Concomitant]
     Active Substance: TRAMADOL
     Indication: Neck pain
     Dosage: 50 MG, AS NEEDED DURING THE DAY, USUALLY 1/2 TAB
  12. TRAMADOL [Concomitant]
     Active Substance: TRAMADOL
     Dosage: 25 MG, AS NEEDED
  13. IBUPROFEN [Concomitant]
     Active Substance: IBUPROFEN
     Indication: Neck pain
  14. BUPROPION [Concomitant]
     Active Substance: BUPROPION
     Dosage: 150 MG, QD
  15. ALPRAZOLAM [Concomitant]
     Active Substance: ALPRAZOLAM
     Dosage: 0.5 MG, AS NEEDED
  16. PROGESTERONE SR [Concomitant]
     Dosage: 100 MG, QD
  17. HYDROCODONE [Concomitant]
     Active Substance: HYDROCODONE
     Dosage: 5/325 MG, AS NEEDED, RARELY
  18. ONDANSETRON [Concomitant]
     Active Substance: ONDANSETRON
     Dosage: 8 MG, AS NEEDED
  19. ARMOUR THYROID [Concomitant]
     Active Substance: THYROID, PORCINE
     Dosage: 65 MG DAILY
  20. BI EST SR [Concomitant]
     Dosage: 5 MG, QD
  21. TRAZODONE [Concomitant]
     Active Substance: TRAZODONE HYDROCHLORIDE
     Indication: Insomnia
     Dosage: 50 MG, AS NEEDED
  22. NITROGLYCERIN [Concomitant]
     Active Substance: NITROGLYCERIN
     Indication: Angina pectoris
     Dosage: AS NEEDED
  23. KETAMINE NS [Concomitant]
     Dosage: AS NEEDED
  24. CARDIZEM [Concomitant]
     Active Substance: DILTIAZEM HYDROCHLORIDE
     Dosage: LOWEST DOSE
  25. GABAPENTIN [Concomitant]
     Active Substance: GABAPENTIN
     Dosage: 300 MG, QHS
  26. COLLAGEN [Concomitant]
     Active Substance: COLLAGEN
  27. MAGNESIUM [Concomitant]
     Active Substance: MAGNESIUM
  28. HERBALS\TURMERIC [Concomitant]
     Active Substance: HERBALS\TURMERIC
  29. FISH OIL [Concomitant]
     Active Substance: FISH OIL

REACTIONS (2)
  - Chest discomfort [Unknown]
  - Therapeutic product effect variable [Unknown]
